FAERS Safety Report 4741783-0 (Version None)
Quarter: 2005Q3

REPORT INFORMATION
  Report Type: 
  Country: None (occurrence: None)
  Receive Date: 20050801
  Receipt Date: 20050624
  Transmission Date: 20060218
  Serious: No
  Sender: FDA-Public Use
  Company Number: 2005PV000125

PATIENT
  Age: 34 Year
  Sex: Female
  Weight: 104.7809 kg

DRUGS (5)
  1. BYETTA [Suspect]
     Indication: DIABETES MELLITUS NON-INSULIN-DEPENDENT
     Dosage: 5 UG; BID; SC
     Route: 058
     Dates: start: 20050621, end: 20050628
  2. GLYBURIDE [Concomitant]
  3. NEXIUM [Concomitant]
  4. WELLBUTRIN [Concomitant]
  5. LEVOXYL [Concomitant]

REACTIONS (7)
  - ABDOMINAL DISTENSION [None]
  - HICCUPS [None]
  - INJECTION SITE PAIN [None]
  - INJECTION SITE PRURITUS [None]
  - NAUSEA [None]
  - RASH [None]
  - VOMITING [None]
